FAERS Safety Report 20182285 (Version 1)
Quarter: 2021Q4

REPORT INFORMATION
  Report Type: Spontaneous
  Country: KR (occurrence: KR)
  Receive Date: 20211214
  Receipt Date: 20211214
  Transmission Date: 20220303
  Serious: Yes (Hospitalization, Other)
  Sender: FDA-Public Use
  Company Number: KR-SANOFI US-2021SA407099

PATIENT
  Age: 13 Year
  Sex: Female
  Weight: 61 kg

DRUGS (40)
  1. PLAVIX [Suspect]
     Active Substance: CLOPIDOGREL BISULFATE
     Indication: Coronary artery disease
     Dosage: 75 MG, QD
     Route: 048
     Dates: start: 20190626
  2. PREDNISOLONE [Suspect]
     Active Substance: PREDNISOLONE
     Indication: Aortitis
     Dosage: 8 MG, BID
     Route: 048
     Dates: start: 20191220, end: 20200206
  3. PREDNISOLONE [Suspect]
     Active Substance: PREDNISOLONE
     Dosage: UNK
     Dates: start: 20191221
  4. CALCIUM CARBONATE\CHOLECALCIFEROL [Suspect]
     Active Substance: CALCIUM CARBONATE\CHOLECALCIFEROL
     Dosage: UNK
     Dates: start: 20190406
  5. CELECOXIB [Suspect]
     Active Substance: CELECOXIB
     Dosage: UNK
     Dates: start: 20191123
  6. CYCLOPHOSPHAMIDE [Suspect]
     Active Substance: CYCLOPHOSPHAMIDE
     Dosage: UNK
     Dates: start: 20191116
  7. CIMETIDINE [Suspect]
     Active Substance: CIMETIDINE
     Dosage: UNK
     Dates: start: 20191123
  8. METHOTREXATE [Suspect]
     Active Substance: METHOTREXATE
     Dosage: UNK
     Dates: start: 20190228, end: 20200206
  9. ASPIRIN [Suspect]
     Active Substance: ASPIRIN
     Indication: Product used for unknown indication
     Dosage: UNK
  10. DOXAZOSIN MESYLATE [Suspect]
     Active Substance: DOXAZOSIN MESYLATE
     Dosage: UNK
     Dates: start: 20200224
  11. AMLODIPINE BESYLATE [Suspect]
     Active Substance: AMLODIPINE BESYLATE
     Dosage: UNK
     Dates: start: 20200629
  12. SULFAMETHOXAZOLE\TRIMETHOPRIM [Suspect]
     Active Substance: SULFAMETHOXAZOLE\TRIMETHOPRIM
     Dosage: UNK
     Dates: start: 20200221
  13. ASPIRIN [Suspect]
     Active Substance: ASPIRIN
     Dosage: UNK
     Dates: start: 20190311
  14. ISOSORBIDE MONONITRATE [Suspect]
     Active Substance: ISOSORBIDE MONONITRATE
     Dosage: UNK
     Dates: start: 20190222
  15. CARVEDILOL [Suspect]
     Active Substance: CARVEDILOL
     Dosage: UNK
     Dates: start: 20200208
  16. LEVOCARNITINE [Suspect]
     Active Substance: LEVOCARNITINE
     Dosage: UNK
     Dates: start: 20190214
  17. INDAPAMIDE [Suspect]
     Active Substance: INDAPAMIDE
     Dosage: UNK
     Dates: start: 20200310
  18. NITROGLYCERIN [Suspect]
     Active Substance: NITROGLYCERIN
     Dosage: UNK
     Dates: start: 20200609
  19. CEFTRIAXONE [Suspect]
     Active Substance: CEFTRIAXONE
     Dosage: UNK
     Dates: start: 20200626, end: 20200710
  20. ACETAMINOPHEN [Suspect]
     Active Substance: ACETAMINOPHEN
     Dosage: UNK
     Dates: start: 20200626
  21. SPIRONOLACTONE [Suspect]
     Active Substance: SPIRONOLACTONE
     Dosage: UNK
     Dates: start: 20200702
  22. ATENOLOL [Suspect]
     Active Substance: ATENOLOL
     Dosage: UNK
     Dates: start: 20200706
  23. ENALAPRIL MALEATE [Suspect]
     Active Substance: ENALAPRIL MALEATE
     Dosage: UNK
     Dates: start: 20200625
  24. TRAMADOL HYDROCHLORIDE [Suspect]
     Active Substance: TRAMADOL HYDROCHLORIDE
     Dosage: UNK
     Dates: start: 20200625, end: 20200625
  25. ATROVENT [Suspect]
     Active Substance: IPRATROPIUM BROMIDE
     Dosage: UNK
     Dates: start: 20200626, end: 20200629
  26. ROSUVASTATIN CALCIUM [Suspect]
     Active Substance: ROSUVASTATIN CALCIUM
     Dosage: UNK
     Dates: start: 20190301
  27. SIMETHICONE (DIMETHICONE) [Suspect]
     Active Substance: DIMETHICONE
     Dosage: UNK
     Dates: start: 20200626, end: 20200626
  28. DOXYCYCLINE [Suspect]
     Active Substance: DOXYCYCLINE
     Dosage: UNK
     Dates: start: 20200629, end: 20200630
  29. XYZAL [Suspect]
     Active Substance: LEVOCETIRIZINE DIHYDROCHLORIDE
     Dosage: UNK
     Dates: start: 20200710
  30. HEPARIN [Suspect]
     Active Substance: HEPARIN SODIUM
     Dosage: UNK
     Dates: start: 20200710, end: 20200713
  31. ENALAPRIL [Concomitant]
     Active Substance: ENALAPRIL
     Indication: Cardiac failure
     Dosage: UNK
     Route: 048
     Dates: start: 20190626, end: 20200207
  32. ENALAPRIL [Concomitant]
     Active Substance: ENALAPRIL
     Dosage: UNK
     Route: 048
     Dates: start: 20200207, end: 20200623
  33. AZATHIOPRINE [Concomitant]
     Active Substance: AZATHIOPRINE
     Dosage: UNK
     Dates: start: 20190608
  34. REBAMIPIDE [Concomitant]
     Active Substance: REBAMIPIDE
     Dosage: UNK
     Dates: start: 20200623
  35. NEXIUM I.V. [Concomitant]
     Active Substance: ESOMEPRAZOLE SODIUM
     Dosage: UNK
     Dates: start: 20200623, end: 20200629
  36. KETAMINE [Concomitant]
     Active Substance: KETAMINE
     Dosage: UNK
     Dates: start: 20200626, end: 20200626
  37. ATROPINE [Concomitant]
     Active Substance: ATROPINE
     Dosage: UNK
     Dates: start: 20200626, end: 20200626
  38. VITAMINS [Concomitant]
     Active Substance: VITAMINS
     Dosage: UNK
     Dates: start: 20200713, end: 20200713
  39. ACTEMRA [Concomitant]
     Active Substance: TOCILIZUMAB
     Dosage: UNK
     Dates: start: 20200706, end: 20200706
  40. ADELAVIN NO.9 [Concomitant]
     Dosage: UNK
     Dates: start: 20200713, end: 20200713

REACTIONS (10)
  - Renal artery stenosis [Unknown]
  - Gastrooesophageal reflux disease [Unknown]
  - Pneumonia [Unknown]
  - Urine glucose/creatinine ratio increased [Unknown]
  - Blood creatinine increased [Unknown]
  - Blood urea increased [Unknown]
  - C-reactive protein increased [Unknown]
  - White blood cell count decreased [Unknown]
  - Vasculitis [Unknown]
  - Blood pressure increased [Unknown]

NARRATIVE: CASE EVENT DATE: 20200206
